FAERS Safety Report 6820804-5 (Version None)
Quarter: 2010Q3

REPORT INFORMATION
  Report Type: 
  Country: None (occurrence: None)
  Receive Date: 20100707
  Receipt Date: 20040227
  Transmission Date: 20110219
  Serious: No
  Sender: FDA-Public Use
  Company Number: US-PFIZER INC-2004021604

PATIENT
  Sex: Female
  Weight: 53.52 kg

DRUGS (2)
  1. ZOLOFT [Suspect]
     Indication: ANXIETY
     Route: 048
     Dates: start: 20040201, end: 20040301
  2. ZIAC [Concomitant]

REACTIONS (5)
  - NAUSEA [None]
  - NIGHT SWEATS [None]
  - SLEEP DISORDER [None]
  - UNEVALUABLE EVENT [None]
  - WEIGHT DECREASED [None]
